FAERS Safety Report 6176897-4 (Version None)
Quarter: 2009Q2

REPORT INFORMATION
  Report Type: 
  Country: None (occurrence: None)
  Receive Date: 20090501
  Receipt Date: 20090421
  Transmission Date: 20091009
  Serious: Yes (Other)
  Sender: FDA-Public Use
  Company Number: US-AMGEN-QUU343812

PATIENT
  Sex: Male

DRUGS (2)
  1. ENBREL [Suspect]
     Indication: RHEUMATOID ARTHRITIS
     Route: 058
     Dates: start: 20031021
  2. PLAQUENIL [Suspect]

REACTIONS (4)
  - ASTHMA [None]
  - DIABETES MELLITUS [None]
  - DRUG TOXICITY [None]
  - GLAUCOMA [None]
